FAERS Safety Report 6571818-4 (Version None)
Quarter: 2010Q1

REPORT INFORMATION
  Report Type: 
  Country: None (occurrence: None)
  Receive Date: 20100205
  Receipt Date: 20100126
  Transmission Date: 20100710
  Serious: Yes (Other)
  Sender: FDA-Public Use
  Company Number: BR-JNJCH-2010003274

PATIENT
  Sex: Female

DRUGS (2)
  1. LISTERINE WHITENING [Suspect]
     Indication: DRUG USE FOR UNKNOWN INDICATION
     Dosage: TEXT:UNKNOWN
     Route: 048
  2. COOL MINT LISTERINE [Suspect]
     Indication: DRUG USE FOR UNKNOWN INDICATION
     Dosage: TEXT:UNKNOWN
     Route: 048

REACTIONS (2)
  - ENAMEL ANOMALY [None]
  - TOOTH DECALCIFICATION [None]
